FAERS Safety Report 6176953 (Version 2)
Quarter: 2013Q3

REPORT INFORMATION
  Report Type: Other
  Country: US (occurrence: US)
  Receive Date: 20061130
  Receipt Date: 20130812
  Transmission Date: 20140515
  Serious: Yes (Hospitalization)
  Sender: FDA-Public Use
  Company Number: US-BRISTOL-MYERS SQUIBB COMPANY-13585278

PATIENT
  Age: 44 Year
  Sex: Male

DRUGS (8)
  1. ATAZANAVIR [Suspect]
  2. RITONAVIR [Concomitant]
  3. LAMIVUDINE [Concomitant]
  4. TENOFOVIR [Concomitant]
  5. CARVEDILOL [Concomitant]
  6. TMP-SMX [Concomitant]
  7. TESTOSTERONE [Concomitant]
  8. HYDROCORTISONE [Concomitant]

REACTIONS (2)
  - Calculus ureteric [None]
  - Lactic acidosis [None]
